FAERS Safety Report 12459918 (Version 1)
Quarter: 2016Q2

REPORT INFORMATION
  Report Type: Spontaneous
  Country: JP (occurrence: JP)
  Receive Date: 20160613
  Receipt Date: 20160613
  Transmission Date: 20160815
  Serious: Yes (Other)
  Sender: FDA-Public Use
  Company Number: JP-BAYER-2015-481400

PATIENT
  Age: 38 Year
  Sex: Female
  Weight: 48 kg

DRUGS (2)
  1. BAYASPIRIN [Suspect]
     Active Substance: ASPIRIN
     Indication: FACTOR XII DEFICIENCY
     Dosage: 100 MG, QD
     Route: 048
     Dates: end: 20160110
  2. BAYASPIRIN [Suspect]
     Active Substance: ASPIRIN
     Indication: FOETAL DEATH

REACTIONS (3)
  - Maternal exposure during pregnancy [None]
  - Off label use [None]
  - Caesarean section [None]

NARRATIVE: CASE EVENT DATE: 20160127
